FAERS Safety Report 4721654-6 (Version None)
Quarter: 2005Q3

REPORT INFORMATION
  Report Type: 
  Country: None (occurrence: None)
  Receive Date: 20050721
  Receipt Date: 20050203
  Transmission Date: 20060218
  Serious: No
  Sender: FDA-Public Use
  Company Number: US-BRISTOL-MYERS SQUIBB COMPANY-12848545

PATIENT
  Age: 88 Year
  Sex: Female
  Weight: 69 kg

DRUGS (3)
  1. COUMADIN [Suspect]
     Indication: ATRIAL FIBRILLATION
     Dosage: 2 MG ON WEDNESDAYS, SATURDAYS, AND SUNDAYS AND 3 MG ON THE OTHER DAYS.
  2. DIGITEK [Concomitant]
  3. MICARDIS [Concomitant]

REACTIONS (2)
  - EPISTAXIS [None]
  - INTERNATIONAL NORMALISED RATIO FLUCTUATION [None]
